FAERS Safety Report 24670911 (Version 2)
Quarter: 2025Q3

REPORT INFORMATION
  Report Type: Spontaneous
  Country: JP (occurrence: JP)
  Receive Date: 20241127
  Receipt Date: 20250803
  Transmission Date: 20251021
  Serious: Yes (Death, Other)
  Sender: ALEXION PHARMACEUTICALS
  Company Number: JP-ASTRAZENECA-240131719_013020_P_1

PATIENT
  Age: 63 Year
  Sex: Male

DRUGS (1)
  1. OSIMERTINIB [Suspect]
     Active Substance: OSIMERTINIB
     Indication: Non-small cell lung cancer

REACTIONS (5)
  - Renal impairment [Recovered/Resolved]
  - Retroperitoneal fibrosis [Unknown]
  - Hydronephrosis [Unknown]
  - Death [Fatal]
  - Urinary tract infection [Unknown]
